FAERS Safety Report 9444934 (Version 1)
Quarter: 2013Q3

REPORT INFORMATION
  Report Type: Spontaneous
  Country: US (occurrence: None)
  Receive Date: 20130802
  Receipt Date: 20130802
  Transmission Date: 20140515
  Serious: Yes (Death)
  Sender: FDA-Public Use
  Company Number: TPA2013A07234

PATIENT
  Sex: Female

DRUGS (1)
  1. PREVACID (LANSOPRAZOLE) [Suspect]
     Dosage: PREVACID LIQUID

REACTIONS (2)
  - Dementia [None]
  - Dysphagia [None]
